FAERS Safety Report 9802827 (Version 1)
Quarter: 2014Q1

REPORT INFORMATION
  Report Type: Spontaneous
  Country: US (occurrence: None)
  Receive Date: 20140106
  Receipt Date: 20140106
  Transmission Date: 20141002
  Serious: Yes (Other)
  Sender: FDA-Public Use
  Company Number: None

PATIENT
  Age: 27 Year
  Sex: Male
  Weight: 56.7 kg

DRUGS (1)
  1. TESTOSTERONE CYPIONATE [Suspect]
     Indication: BLOOD TESTOSTERONE DECREASED
     Dosage: 10 INJECTIONS    WEEKLY  INTO THE MUSCLE
     Route: 030
     Dates: start: 201307, end: 201309

REACTIONS (2)
  - Drug ineffective [None]
  - Product quality issue [None]
